FAERS Safety Report 5220804-5 (Version None)
Quarter: 2007Q1

REPORT INFORMATION
  Report Type: 
  Country: None (occurrence: None)
  Receive Date: 20070126
  Receipt Date: 20070117
  Transmission Date: 20070707
  Serious: Yes (Hospitalization, Other)
  Sender: FDA-Public Use
  Company Number: PHNU2005DE00461

PATIENT
  Age: 61 Year
  Sex: Male

DRUGS (1)
  1. ZOMETA [Suspect]
     Indication: MULTIPLE MYELOMA
     Dosage: 4 MG, QMO
     Route: 042
     Dates: start: 20010101, end: 20040101

REACTIONS (17)
  - BONE LESION [None]
  - CLAVICLE FRACTURE [None]
  - DENTAL TREATMENT [None]
  - EATING DISORDER [None]
  - EXOSTOSIS [None]
  - GAMMA-GLUTAMYLTRANSFERASE INCREASED [None]
  - HAEMOGLOBIN DECREASED [None]
  - JAW OPERATION [None]
  - MALIGNANT NEOPLASM PROGRESSION [None]
  - MASS [None]
  - MUCOSAL EROSION [None]
  - OSTEOLYSIS [None]
  - OSTEONECROSIS [None]
  - PLASMACYTOMA [None]
  - PORTAL SHUNT [None]
  - PROTEIN TOTAL INCREASED [None]
  - TOOTH EXTRACTION [None]
